FAERS Safety Report 8884044 (Version 3)
Quarter: 2019Q1

REPORT INFORMATION
  Report Type: Spontaneous
  Country: DK (occurrence: DK)
  Receive Date: 20121102
  Receipt Date: 20190226
  Transmission Date: 20190418
  Serious: Yes (Hospitalization)
  Sender: FDA-Public Use
  Company Number: DK-ELI_LILLY_AND_COMPANY-DK201210008511

PATIENT
  Age: 68 Year
  Sex: Female
  Weight: 64 kg

DRUGS (2)
  1. FORSTEO [Suspect]
     Active Substance: TERIPARATIDE
     Indication: OSTEOPOROSIS
     Dosage: 20 UG, UNKNOWN
     Route: 065
     Dates: start: 20111017, end: 20121017
  2. ATACAND ZID [Concomitant]
     Active Substance: CANDESARTAN CILEXETIL\HYDROCHLOROTHIAZIDE
     Indication: HYPERTENSION

REACTIONS (20)
  - Pain in extremity [Recovering/Resolving]
  - Syncope [Unknown]
  - Abdominal pain upper [Recovering/Resolving]
  - Multiple fractures [Unknown]
  - Bone pain [Unknown]
  - Tooth impacted [Recovering/Resolving]
  - Pain in jaw [Recovering/Resolving]
  - Myalgia [Recovering/Resolving]
  - Acute cardiac event [Unknown]
  - Headache [Recovering/Resolving]
  - Dyspnoea [Recovering/Resolving]
  - Dizziness [Recovering/Resolving]
  - Onychoclasis [Recovering/Resolving]
  - Cardiac discomfort [Recovering/Resolving]
  - Fatigue [Recovering/Resolving]
  - Asthenia [Recovering/Resolving]
  - Hepatic enzyme abnormal [Recovering/Resolving]
  - Visual impairment [Unknown]
  - Gout [Unknown]
  - Muscle spasms [Recovering/Resolving]

NARRATIVE: CASE EVENT DATE: 20111120
